FAERS Safety Report 5273718-9 (Version None)
Quarter: 2007Q1

REPORT INFORMATION
  Report Type: 
  Country: None (occurrence: None)
  Receive Date: 20070323
  Receipt Date: 20070314
  Transmission Date: 20070707
  Serious: Yes (Hospitalization, Other)
  Sender: FDA-Public Use
  Company Number: US-AMGEN-US206547

PATIENT
  Sex: Male
  Weight: 83.5 kg

DRUGS (19)
  1. ARANESP [Suspect]
     Indication: ANAEMIA
     Route: 058
     Dates: start: 20060601
  2. REGLAN [Concomitant]
     Route: 050
  3. COUMADIN [Concomitant]
  4. LASIX [Concomitant]
  5. NOVOLIN 70/30 [Concomitant]
  6. AMIODARONE HCL [Concomitant]
  7. KLONOPIN [Concomitant]
  8. KLONOPIN [Concomitant]
  9. DIGOXIN [Concomitant]
  10. COLACE [Concomitant]
  11. RITALIN [Concomitant]
  12. PREVACID [Concomitant]
  13. FLOMAX [Concomitant]
  14. LEXAPRO [Concomitant]
  15. URSODIOL [Concomitant]
  16. SYNTHROID [Concomitant]
  17. COREG [Concomitant]
  18. CARAFATE [Concomitant]
  19. ZOSYN [Concomitant]
     Route: 042

REACTIONS (3)
  - PNEUMONIA [None]
  - RESPIRATORY DISTRESS [None]
  - THERAPEUTIC RESPONSE DECREASED [None]
